FAERS Safety Report 18382435 (Version 1)
Quarter: 2020Q4

REPORT INFORMATION
  Report Type: Spontaneous
  Country: US (occurrence: US)
  Receive Date: 20201013
  Receipt Date: 20201013
  Transmission Date: 20210114
  Serious: No
  Sender: FDA-Public Use
  Company Number: None

PATIENT
  Age: 51 Year
  Sex: Male

DRUGS (1)
  1. AMBRISENTAN TAB 10 MG [Suspect]
     Active Substance: AMBRISENTAN
     Route: 048
     Dates: start: 201803

REACTIONS (2)
  - Cardio-respiratory arrest [None]
  - Therapy interrupted [None]

NARRATIVE: CASE EVENT DATE: 20201008
